FAERS Safety Report 5552427-2 (Version None)
Quarter: 2007Q4

REPORT INFORMATION
  Report Type: 
  Country: None (occurrence: None)
  Receive Date: 20071210
  Receipt Date: 20071123
  Transmission Date: 20080405
  Serious: Yes (Death)
  Sender: FDA-Public Use
  Company Number: ADE2007-0059

PATIENT
  Age: 38 Year
  Sex: Male

DRUGS (5)
  1. CITALOPRAM HYDROBROMIDE [Suspect]
     Indication: ANXIETY
     Dosage: 40 MG - QD - PO
     Route: 048
  2. CITALOPRAM HYDROBROMIDE [Suspect]
     Indication: DEPRESSION
     Dosage: 40 MG - QD - PO
     Route: 048
  3. CITALOPRAM HYDROBROMIDE [Suspect]
     Indication: PANIC DISORDER
     Dosage: 40 MG - QD - PO
     Route: 048
  4. RISPERIDONE [Concomitant]
  5. VALPROATE SODIUM [Concomitant]

REACTIONS (1)
  - DRUG TOXICITY [None]
